FAERS Safety Report 25831360 (Version 1)
Quarter: 2025Q3

REPORT INFORMATION
  Report Type: Spontaneous
  Country: US (occurrence: None)
  Receive Date: 20250920
  Receipt Date: 20250920
  Transmission Date: 20251021
  Serious: Yes (Hospitalization)
  Sender: FDA-CTU
  Company Number: None

PATIENT
  Age: 57 Year
  Sex: Female
  Weight: 85.5 kg

DRUGS (12)
  1. WEGOVY [Suspect]
     Active Substance: SEMAGLUTIDE
     Indication: Weight decreased
  2. LOSARTAN [Concomitant]
     Active Substance: LOSARTAN
  3. HYDROCHLOROTHIAZIDE [Concomitant]
     Active Substance: HYDROCHLOROTHIAZIDE
  4. TYLENOL WITH CODEINE [Concomitant]
     Active Substance: ACETAMINOPHEN\CODEINE PHOSPHATE
  5. SOMA [Concomitant]
     Active Substance: CARISOPRODOL
  6. FLEXERIL [Concomitant]
     Active Substance: CYCLOBENZAPRINE HYDROCHLORIDE
  7. VITAMINS [Concomitant]
     Active Substance: VITAMINS
  8. PROGESTERONE [Concomitant]
     Active Substance: PROGESTERONE
  9. ESTRADIOL [Concomitant]
     Active Substance: ESTRADIOL
  10. MONTELUKAST [Concomitant]
     Active Substance: MONTELUKAST
  11. OMEPRAZOLE [Concomitant]
     Active Substance: OMEPRAZOLE
  12. PUMPKIN SEED OIL [Concomitant]
     Active Substance: PUMPKIN SEED OIL

REACTIONS (2)
  - Transient global amnesia [None]
  - Retrograde amnesia [None]

NARRATIVE: CASE EVENT DATE: 20250412
